FAERS Safety Report 6720607-6 (Version None)
Quarter: 2010Q2

REPORT INFORMATION
  Report Type: 
  Country: None (occurrence: None)
  Receive Date: 20100510
  Receipt Date: 20100423
  Transmission Date: 20101027
  Serious: Yes (Other)
  Sender: FDA-Public Use
  Company Number: 2010-0676

PATIENT
  Age: 24 Year
  Sex: Female

DRUGS (3)
  1. DYSPORT [Suspect]
     Indication: MUSCLE SPASTICITY
     Dosage: 1350 UNITS (1350 UNITS, SINGLE CYCLE), INTRAMUSCULAR
     Route: 030
     Dates: start: 20100125, end: 20100125
  2. PAROXETINE HYDROCHLORIDE [Concomitant]
  3. LYRICA [Concomitant]

REACTIONS (2)
  - ASTHENIA [None]
  - FATIGUE [None]
